FAERS Safety Report 8933990 (Version 2)
Quarter: 2012Q4

REPORT INFORMATION
  Report Type: 
  Country: FR (occurrence: FR)
  Receive Date: 20121129
  Receipt Date: 20121210
  Transmission Date: 20130627
  Serious: Yes (Hospitalization, Other)
  Sender: FDA-Public Use
  Company Number: FR-ASTRAZENECA-2012SE88978

PATIENT
  Age: 30268 Day
  Sex: Male

DRUGS (11)
  1. ATACAND [Suspect]
     Indication: HYPERTENSION
     Route: 048
     Dates: start: 2009, end: 20120730
  2. ATACAND [Suspect]
     Indication: HYPERTENSION
     Route: 048
     Dates: start: 20120803
  3. ESIDREX [Suspect]
     Indication: HYPERTENSION
     Route: 048
     Dates: start: 2006, end: 20120730
  4. DAFALGAN [Suspect]
     Route: 048
     Dates: end: 20120730
  5. LOMUSOL [Suspect]
     Indication: RHINITIS ALLERGIC
     Route: 045
     Dates: end: 20120730
  6. BECONASE [Suspect]
     Indication: RHINITIS ALLERGIC
     Route: 045
     Dates: end: 20120730
  7. CETIRIZINE [Suspect]
     Indication: RHINITIS ALLERGIC
     Route: 048
     Dates: end: 20120730
  8. ECONAZOLE [Suspect]
     Route: 003
     Dates: end: 20120730
  9. KARDEGIC [Concomitant]
     Indication: CARDIOVASCULAR EVENT PROPHYLAXIS
  10. BISOPROLOL [Concomitant]
     Indication: CARDIOVASCULAR EVENT PROPHYLAXIS
  11. TAHOR [Concomitant]
     Indication: CARDIOVASCULAR EVENT PROPHYLAXIS

REACTIONS (4)
  - Dehydration [Recovered/Resolved]
  - Diarrhoea haemorrhagic [Recovered/Resolved]
  - Rectal haemorrhage [Unknown]
  - Renal failure acute [Recovered/Resolved]
